FAERS Safety Report 8849133 (Version 1)
Quarter: 2012Q4

REPORT INFORMATION
  Report Type: Spontaneous
  Country: US (occurrence: None)
  Receive Date: 20121017
  Receipt Date: 20121017
  Transmission Date: 20130627
  Serious: Yes (Other)
  Sender: FDA-Public Use
  Company Number: None

PATIENT
  Age: 36 Year
  Sex: Female

DRUGS (10)
  1. DOCETAXEL [Suspect]
     Indication: BREAST CANCER STAGE I
     Dosage: 75 mg/m2 over 60 minutes IV Drip
3 doses, event 09/18/12
     Route: 041
     Dates: start: 20120918
  2. CYTOXAN [Concomitant]
  3. DEXAMETHASONE [Concomitant]
  4. VALTREX [Concomitant]
  5. METRONIDAZOLE 1% CREAM [Concomitant]
  6. MULTIVITAMIN [Concomitant]
  7. MULTIVITAMIN [Concomitant]
  8. COMPAZINE [Concomitant]
  9. ZOFRAN [Concomitant]
  10. OMEPRAZOLE [Concomitant]

REACTIONS (1)
  - Erythema [None]
